FAERS Safety Report 19727623 (Version 1)
Quarter: 2021Q3

REPORT INFORMATION
  Report Type: Report from Study
  Country: None (occurrence: BR)
  Receive Date: 20210819
  Receipt Date: 20210819
  Transmission Date: 20211014
  Serious: Yes (Other)
  Sender: FDA-Public Use
  Company Number: BR-ABBVIE-21K-020-4043609-00

PATIENT
  Sex: Female
  Weight: 56 kg

DRUGS (1)
  1. RINVOQ [Suspect]
     Active Substance: UPADACITINIB
     Indication: RHEUMATOID ARTHRITIS
     Route: 048
     Dates: start: 202105, end: 202107

REACTIONS (11)
  - Vision blurred [Recovering/Resolving]
  - Pollakiuria [Recovering/Resolving]
  - Herpes zoster [Recovering/Resolving]
  - Skin disorder [Recovering/Resolving]
  - Swelling face [Recovering/Resolving]
  - Herpes ophthalmic [Recovering/Resolving]
  - Blood pressure increased [Recovered/Resolved]
  - Wound [Recovering/Resolving]
  - Superficial injury of eye [Unknown]
  - Urinary tract infection [Recovered/Resolved]
  - Oral herpes [Recovering/Resolving]

NARRATIVE: CASE EVENT DATE: 2021
